FAERS Safety Report 6801956-X (Version None)
Quarter: 2010Q2

REPORT INFORMATION
  Report Type: 
  Country: None (occurrence: None)
  Receive Date: 20100629
  Receipt Date: 20100615
  Transmission Date: 20101027
  Serious: Yes (Other)
  Sender: FDA-Public Use
  Company Number: HU-ELI_LILLY_AND_COMPANY-HU201006007197

PATIENT
  Sex: Female
  Weight: 105 kg

DRUGS (19)
  1. GEMCITABINE HYDROCHLORIDE [Suspect]
     Indication: NON-SMALL CELL LUNG CANCER
     Dosage: 2487 MG, OTHER
     Route: 042
     Dates: start: 20100325, end: 20100601
  2. CISPLATIN [Suspect]
     Indication: NON-SMALL CELL LUNG CANCER
     Dosage: 150 MG, OTHER
     Route: 042
     Dates: start: 20100325, end: 20100526
  3. OTHER PHARMA COMPANY INV DRUG [Suspect]
     Indication: NON-SMALL CELL LUNG CANCER
     Dosage: 800 MG, QOD
     Route: 042
     Dates: start: 20100325, end: 20100601
  4. TENOX [Concomitant]
     Indication: HYPERTENSION
     Dates: start: 20100114
  5. METFOGAMMA [Concomitant]
     Indication: DIABETES MELLITUS
     Dates: start: 20091203
  6. ASPIRIN [Concomitant]
     Indication: PROPHYLAXIS
     Dates: start: 20091203
  7. NOVIFORM [Concomitant]
     Indication: HYPERTONIA
     Dates: start: 20100114
  8. FUROSEMIDE [Concomitant]
     Indication: HYPERTENSION
     Dates: start: 20091203
  9. POTASSIUM [Concomitant]
     Indication: HYPERTENSION
     Dates: start: 20091203
  10. MORFIN [Concomitant]
     Indication: PAIN
     Dates: start: 20100122
  11. SALBUTAMOL [Concomitant]
     Indication: CHRONIC OBSTRUCTIVE PULMONARY DISEASE
     Dates: start: 20100324
  12. ATIMOS [Concomitant]
     Indication: CHRONIC OBSTRUCTIVE PULMONARY DISEASE
     Dates: start: 20100324
  13. SPIRIVA [Concomitant]
     Indication: CHRONIC OBSTRUCTIVE PULMONARY DISEASE
     Dates: start: 20100324
  14. LANSOPRAZOLE [Concomitant]
     Indication: NAUSEA
     Dates: start: 20100420
  15. HYDROCORTISON [Concomitant]
     Indication: DERMATITIS ACNEIFORM
     Dates: start: 20100505
  16. EMETRON [Concomitant]
     Indication: PROPHYLAXIS
     Dosage: 8 MG, UNK
     Dates: start: 20100505, end: 20100509
  17. EMETRON [Concomitant]
     Dates: start: 20100505, end: 20100505
  18. EMETRON [Concomitant]
     Dates: start: 20100413, end: 20100419
  19. EMETRON [Concomitant]
     Dates: start: 20100325, end: 20100329

REACTIONS (2)
  - HYPOCALCAEMIA [None]
  - HYPOMAGNESAEMIA [None]
